APPROVED DRUG PRODUCT: SULFAIR FORTE
Active Ingredient: SULFACETAMIDE SODIUM
Strength: 30%
Dosage Form/Route: SOLUTION/DROPS;OPHTHALMIC
Application: A088385 | Product #001
Applicant: PHARMAFAIR INC
Approved: Oct 13, 1983 | RLD: No | RS: No | Type: DISCN